FAERS Safety Report 7262986-X (Version None)
Quarter: 2011Q1

REPORT INFORMATION
  Report Type: 
  Country: None (occurrence: None)
  Receive Date: 20110130
  Receipt Date: 20101013
  Transmission Date: 20110831
  Serious: No
  Sender: FDA-Public Use
  Company Number: US-ABBOTT-10P-163-0678941-00

PATIENT
  Age: 59 Year
  Sex: Male
  Weight: 118.04 kg

DRUGS (4)
  1. HUMIRA [Suspect]
     Indication: PSORIATIC ARTHROPATHY
     Dates: start: 20080101
  2. HUMIRA [Suspect]
     Indication: PSORIASIS
  3. ZOLOFT [Concomitant]
     Indication: PANIC DISORDER
  4. KLONOPIN [Concomitant]
     Indication: PANIC DISORDER

REACTIONS (1)
  - PSORIASIS [None]
